FAERS Safety Report 14840537 (Version 4)
Quarter: 2018Q2

REPORT INFORMATION
  Report Type: Spontaneous
  Country: US (occurrence: US)
  Receive Date: 20180503
  Receipt Date: 20180629
  Transmission Date: 20180711
  Serious: No
  Sender: FDA-Public Use
  Company Number: US-AMGEN-USASP2018058468

PATIENT
  Sex: Female
  Weight: 73.48 kg

DRUGS (6)
  1. ENBREL [Suspect]
     Active Substance: ETANERCEPT
     Indication: RHEUMATOID ARTHRITIS
     Dosage: UNK UNK, QWK
     Route: 065
     Dates: start: 201801, end: 201801
  2. PREMARIN [Concomitant]
     Active Substance: ESTROGENS, CONJUGATED
     Indication: HOT FLUSH
     Dosage: 10 MG, QD
     Route: 048
     Dates: start: 201707
  3. HUMIRA [Suspect]
     Active Substance: ADALIMUMAB
     Indication: RHEUMATOID ARTHRITIS
     Dosage: UNK, Q2WK
     Route: 058
     Dates: start: 201712, end: 2018
  4. XELJANZ [Concomitant]
     Active Substance: TOFACITINIB CITRATE
     Dosage: UNK
  5. SINUS [Concomitant]
     Active Substance: ACETAMINOPHEN\CHLORPHENIRAMINE MALEATE\PHENYLEPHRINE HYDROCHLORIDE
     Indication: SINUS DISORDER
     Dosage: UNK
  6. METHYLPREDNISOLONE. [Concomitant]
     Active Substance: METHYLPREDNISOLONE
     Dosage: UNK
     Route: 048

REACTIONS (17)
  - Dizziness [Recovered/Resolved]
  - Tachycardia [Recovered/Resolved]
  - Drug ineffective [Unknown]
  - Synovitis [Not Recovered/Not Resolved]
  - Liver function test increased [Recovered/Resolved]
  - Urticaria [Unknown]
  - Local reaction [Recovered/Resolved]
  - Anxiety [Unknown]
  - Musculoskeletal stiffness [Recovered/Resolved]
  - Adverse drug reaction [Recovered/Resolved]
  - Loss of personal independence in daily activities [Recovered/Resolved]
  - Platelet count decreased [Recovered/Resolved]
  - Musculoskeletal disorder [Recovered/Resolved]
  - Arthralgia [Recovered/Resolved]
  - Inflammation [Unknown]
  - Nausea [Recovered/Resolved]
  - Joint range of motion decreased [Recovered/Resolved]

NARRATIVE: CASE EVENT DATE: 2018
